FAERS Safety Report 7713500-3 (Version None)
Quarter: 2011Q3

REPORT INFORMATION
  Report Type: 
  Country: None (occurrence: None)
  Receive Date: 20110826
  Receipt Date: 20110824
  Transmission Date: 20111222
  Serious: Yes (Hospitalization, Other)
  Sender: FDA-Public Use
  Company Number: US-AMGEN-USASP2011042896

PATIENT
  Age: 39 Year
  Sex: Male
  Weight: 104 kg

DRUGS (8)
  1. CORTICOSTEROIDS [Concomitant]
  2. PREDNISONE [Concomitant]
     Dosage: UNK
     Dates: start: 20110328
  3. OXYCODONE HCL [Concomitant]
     Dosage: 5 MG, UNK
  4. NPLATE [Suspect]
     Indication: IDIOPATHIC THROMBOCYTOPENIC PURPURA
     Dosage: 3 A?G/KG, UNK
     Route: 058
     Dates: start: 20110708
  5. CYCLOBENZAPRINE [Concomitant]
     Dosage: 10 MG, Q8H
  6. ETHAMBUTOL HYDROCHLORIDE [Concomitant]
     Dosage: 1200 MG, UNK
  7. SULFAMETHOXAZOLE AND TRIMETHOPRIM [Concomitant]
  8. FLUCONAZOLE [Concomitant]
     Dosage: 100 MG, QD

REACTIONS (3)
  - NAUSEA [None]
  - THROMBOCYTOPENIA [None]
  - HAEMATOLOGICAL MALIGNANCY [None]
